FAERS Safety Report 13080160 (Version 2)
Quarter: 2017Q1

REPORT INFORMATION
  Report Type: Spontaneous
  Country: IT (occurrence: IT)
  Receive Date: 20170103
  Receipt Date: 20170216
  Transmission Date: 20170428
  Serious: Yes (Other)
  Sender: FDA-Public Use
  Company Number: IT-PFIZER INC-2016597402

PATIENT
  Age: 45 Year
  Sex: Female

DRUGS (4)
  1. GABAPENTIN. [Suspect]
     Active Substance: GABAPENTIN
     Dosage: UNK
  2. CARBAMAZEPINE. [Interacting]
     Active Substance: CARBAMAZEPINE
     Dosage: UNK
  3. ZOLPIDEM TARTRATE. [Interacting]
     Active Substance: ZOLPIDEM TARTRATE
     Dosage: UNK
  4. PIMOZIDE. [Suspect]
     Active Substance: PIMOZIDE
     Dosage: UNK

REACTIONS (3)
  - Labelled drug-drug interaction medication error [Unknown]
  - Intentional self-injury [Unknown]
  - Coma [Unknown]
